FAERS Safety Report 24655679 (Version 3)
Quarter: 2025Q1

REPORT INFORMATION
  Report Type: Spontaneous
  Country: JP (occurrence: JP)
  Receive Date: 20241123
  Receipt Date: 20250327
  Transmission Date: 20250409
  Serious: Yes (Hospitalization, Other)
  Sender: ALEXION PHARMACEUTICALS
  Company Number: JP-ASTRAZENECA-240129466_064320_P_1

PATIENT
  Age: 79 Year
  Weight: 54 kg

DRUGS (22)
  1. ANDEXXA [Suspect]
     Active Substance: ANDEXANET ALFA
     Indication: Cerebral haemorrhage
  2. ANDEXXA [Suspect]
     Active Substance: ANDEXANET ALFA
     Indication: Thalamus haemorrhage
  3. NICARDIPINE HYDROCHLORIDE [Concomitant]
     Active Substance: NICARDIPINE HYDROCHLORIDE
     Indication: Hypertension
  4. HUMULIN R [Concomitant]
     Active Substance: INSULIN HUMAN
     Indication: Diabetes mellitus
  5. FAMOTIDINE [Concomitant]
     Active Substance: FAMOTIDINE
     Indication: Prophylaxis
     Dosage: 20 MILLIGRAM, QD
  6. FAMOTIDINE [Concomitant]
     Active Substance: FAMOTIDINE
     Indication: Stress ulcer
  7. MEROPENEM [Concomitant]
     Active Substance: MEROPENEM
     Indication: Urinary tract infection
     Dosage: 1 GRAM, BID
  8. Vasolan [Concomitant]
     Indication: Thalamus haemorrhage
     Dosage: 5 MILLIGRAM, QD
  9. KCl Corrective [Concomitant]
     Indication: Hypokalaemia
     Dosage: 10 MILLILITER, QD
  10. KCl Corrective [Concomitant]
     Route: 065
  11. VONOPRAZAN FUMARATE [Concomitant]
     Active Substance: VONOPRAZAN FUMARATE
     Indication: Stress ulcer
     Dosage: 20 MILLIGRAM, QD
     Route: 050
  12. VONOPRAZAN FUMARATE [Concomitant]
     Active Substance: VONOPRAZAN FUMARATE
     Indication: Prophylaxis
  13. SPIRONOLACTONE [Concomitant]
     Active Substance: SPIRONOLACTONE
     Indication: Atrial fibrillation
     Dosage: 50 MILLIGRAM, QD
     Route: 050
  14. SPIRONOLACTONE [Concomitant]
     Active Substance: SPIRONOLACTONE
     Route: 050
  15. SPIRONOLACTONE [Concomitant]
     Active Substance: SPIRONOLACTONE
     Route: 050
  16. AZOSEMIDE [Concomitant]
     Active Substance: AZOSEMIDE
     Indication: Atrial fibrillation
     Dosage: 60 MILLIGRAM, QD
     Route: 050
  17. AZOSEMIDE [Concomitant]
     Active Substance: AZOSEMIDE
     Route: 050
  18. AZOSEMIDE [Concomitant]
     Active Substance: AZOSEMIDE
     Route: 050
  19. LANSOPRAZOLE [Concomitant]
     Active Substance: LANSOPRAZOLE
     Indication: Stress ulcer
     Dosage: 15 MILLIGRAM, QD
     Route: 050
  20. LANSOPRAZOLE [Concomitant]
     Active Substance: LANSOPRAZOLE
     Indication: Prophylaxis
  21. PIPERACILLIN SODIUM\TAZOBACTAM SODIUM [Concomitant]
     Active Substance: PIPERACILLIN SODIUM\TAZOBACTAM SODIUM
     Indication: Urinary tract infection
     Dosage: 4.5 GRAM, BID
  22. DEXTROSE [Concomitant]
     Active Substance: DEXTROSE MONOHYDRATE
     Route: 065

REACTIONS (3)
  - Cerebral infarction [Not Recovered/Not Resolved]
  - Stress cardiomyopathy [Unknown]
  - Hepatic function abnormal [Recovering/Resolving]
